FAERS Safety Report 5223564-7 (Version None)
Quarter: 2007Q1

REPORT INFORMATION
  Report Type: 
  Country: None (occurrence: None)
  Receive Date: 20070125
  Receipt Date: 20070104
  Transmission Date: 20070707
  Serious: Yes (Other)
  Sender: FDA-Public Use
  Company Number: 200610210BBE

PATIENT
  Age: 18 Year
  Sex: Male
  Weight: 61.7 kg

DRUGS (5)
  1. KOATE [Suspect]
     Indication: FACTOR VIII DEFICIENCY
  2. ASCORBIC ACID [Concomitant]
  3. BLUE GREEN ALGAE [Concomitant]
  4. ECHINACEA [Concomitant]
  5. EPOETIN [Concomitant]

REACTIONS (4)
  - CHROMATURIA [None]
  - HAEMOLYTIC ANAEMIA [None]
  - NEUROLOGICAL SYMPTOM [None]
  - PROCEDURAL COMPLICATION [None]
